FAERS Safety Report 14401994 (Version 1)
Quarter: 2018Q1

REPORT INFORMATION
  Report Type: Spontaneous
  Country: US (occurrence: US)
  Receive Date: 20180117
  Receipt Date: 20180117
  Transmission Date: 20180509
  Serious: No
  Sender: FDA-Public Use
  Company Number: US-009507513-1712USA009214

PATIENT
  Age: 20 Year
  Sex: Female
  Weight: 84.81 kg

DRUGS (1)
  1. NEXPLANON [Suspect]
     Active Substance: ETONOGESTREL
     Indication: CONTRACEPTION
     Dosage: IMPLANT, EVERY 3 YEARS
     Route: 059
     Dates: start: 20161222

REACTIONS (5)
  - Vaginal haemorrhage [Unknown]
  - Menstruation irregular [Unknown]
  - Amenorrhoea [Recovered/Resolved]
  - Vision blurred [Unknown]
  - Headache [Unknown]

NARRATIVE: CASE EVENT DATE: 20161222
